FAERS Safety Report 7362971-3 (Version None)
Quarter: 2011Q1

REPORT INFORMATION
  Report Type: 
  Country: None (occurrence: None)
  Receive Date: 20110321
  Receipt Date: 20110309
  Transmission Date: 20110831
  Serious: No
  Sender: FDA-Public Use
  Company Number: US-BIOGENIDEC-2011BI009120

PATIENT
  Sex: Female

DRUGS (2)
  1. AVONEX [Suspect]
     Indication: MULTIPLE SCLEROSIS
     Route: 030
     Dates: start: 20090223, end: 20100801
  2. AVONEX [Suspect]
     Route: 030
     Dates: end: 20110201

REACTIONS (3)
  - HYPOAESTHESIA [None]
  - BALANCE DISORDER [None]
  - PAIN IN EXTREMITY [None]
